FAERS Safety Report 5136097-3 (Version None)
Quarter: 2006Q4

REPORT INFORMATION
  Report Type: 
  Country: None (occurrence: None)
  Receive Date: 20061027
  Receipt Date: 20060919
  Transmission Date: 20070319
  Serious: Yes (Other)
  Sender: FDA-Public Use
  Company Number: US-SOLVAY-00206003086

PATIENT
  Age: 69 Year
  Sex: Male
  Weight: 84 kg

DRUGS (10)
  1. ACCOLATE [Concomitant]
     Indication: ASTHMA
     Dosage: DAILY DOSE: 40 MILLIGRAM(S)
     Route: 048
     Dates: start: 20010101
  2. ANDROGEL [Suspect]
     Indication: ILL-DEFINED DISORDER
     Dosage: DAILY DOSE:  UNKNOWN
     Route: 062
     Dates: start: 20060101, end: 20060101
  3. ANDROGEL [Suspect]
     Dosage: DAILY DOSE: 2.5 GRAM(S)
     Route: 062
     Dates: start: 20060801, end: 20060801
  4. ANDROGEL [Suspect]
     Dosage: DAILY DOSE: 2.5 GRAM(S)
     Route: 062
     Dates: start: 20060916, end: 20060916
  5. ADVAIR DISKUS 100/50 [Concomitant]
     Indication: ASTHMA
     Dosage: DAILY DOSE:  250/50
     Route: 048
     Dates: start: 20010101
  6. TEMAZEPAM [Concomitant]
     Indication: SLEEP DISORDER
     Dosage: DAILY DOSE: 60 MILLIGRAM(S)
     Route: 048
     Dates: start: 20010101
  7. CRESTOR [Concomitant]
     Indication: BLOOD CHOLESTEROL INCREASED
     Dosage: DAILY DOSE: 40 MILLIGRAM(S)
     Route: 048
     Dates: start: 20060701
  8. PROVENTIL [Concomitant]
     Indication: ASTHMA
     Dosage: DAILY DOSE:  AS NEEDED
     Route: 048
     Dates: start: 20010101
  9. NASONEX [Concomitant]
     Indication: VOCAL CORD DISORDER
     Dosage: DAILY DOSE:  AS NEEDED
     Route: 045
     Dates: start: 20010101
  10. PREVACID [Concomitant]
     Indication: GASTROOESOPHAGEAL REFLUX DISEASE
     Dosage: DAILY DOSE: 30 MILLIGRAM(S)
     Route: 048
     Dates: start: 20010101

REACTIONS (4)
  - DIZZINESS [None]
  - FLUSHING [None]
  - LOSS OF CONSCIOUSNESS [None]
  - POOR QUALITY DRUG ADMINISTERED [None]
